FAERS Safety Report 19648801 (Version 2)
Quarter: 2021Q3

REPORT INFORMATION
  Report Type: Report from Study
  Country: US (occurrence: US)
  Receive Date: 20210802
  Receipt Date: 20210809
  Transmission Date: 20211014
  Serious: Yes (Other)
  Sender: FDA-Public Use
  Company Number: NVSC2021US156123

PATIENT
  Sex: Female

DRUGS (1)
  1. KESIMPTA [Suspect]
     Active Substance: OFATUMUMAB
     Indication: RELAPSING MULTIPLE SCLEROSIS
     Dosage: 20 MG
     Route: 058

REACTIONS (3)
  - Multiple sclerosis [Unknown]
  - Product dose omission issue [Unknown]
  - B-lymphocyte count increased [Unknown]
